FAERS Safety Report 7552343-0 (Version None)
Quarter: 2011Q2

REPORT INFORMATION
  Report Type: 
  Country: None (occurrence: None)
  Receive Date: 20110616
  Receipt Date: 20061016
  Transmission Date: 20111010
  Serious: Yes (Death, Hospitalization)
  Sender: FDA-Public Use
  Company Number: PHEH2006US11168

PATIENT
  Sex: Male
  Weight: 49.886 kg

DRUGS (2)
  1. EXJADE [Suspect]
     Dosage: 2000 MG, QD
     Route: 048
  2. VICODIN [Concomitant]

REACTIONS (16)
  - ASTHENIA [None]
  - VIITH NERVE PARALYSIS [None]
  - SEPTIC SHOCK [None]
  - RENAL DISORDER [None]
  - HYPOTENSION [None]
  - TENDERNESS [None]
  - HYPOPHAGIA [None]
  - NEUTROPENIA [None]
  - PNEUMONIA [None]
  - PYREXIA [None]
  - PAIN IN JAW [None]
  - CLOSTRIDIUM DIFFICILE COLITIS [None]
  - CONFUSIONAL STATE [None]
  - DIABETES MELLITUS [None]
  - SERRATIA BACTERAEMIA [None]
  - HYPOKALAEMIA [None]
